FAERS Safety Report 8858778 (Version 1)
Quarter: 2012Q4

REPORT INFORMATION
  Report Type: Report from Study
  Country: CA (occurrence: CA)
  Receive Date: 20121024
  Receipt Date: 20121024
  Transmission Date: 20130627
  Serious: Yes (Hospitalization)
  Sender: FDA-Public Use
  Company Number: CA-JNJFOC-20121007476

PATIENT
  Age: 39 Year
  Sex: Male
  Weight: 121 kg

DRUGS (1)
  1. REMICADE [Suspect]
     Indication: ANKYLOSING SPONDYLITIS
     Route: 042
     Dates: start: 20070223

REACTIONS (2)
  - Pericarditis [Not Recovered/Not Resolved]
  - Nephropathy [Unknown]
